FAERS Safety Report 11421203 (Version 1)
Quarter: 2015Q3

REPORT INFORMATION
  Report Type: Spontaneous
  Country: DK (occurrence: NL)
  Receive Date: 20150826
  Receipt Date: 20150826
  Transmission Date: 20151125
  Serious: Yes (Other)
  Sender: FDA-Public Use
  Company Number: NL-FRI-1000079135

PATIENT
  Age: 0 Year
  Sex: Female

DRUGS (2)
  1. CITALOPRAM [Suspect]
     Active Substance: CITALOPRAM HYDROBROMIDE
     Indication: PRODUCT USED FOR UNKNOWN INDICATION
     Route: 064
     Dates: start: 20141117, end: 20150715
  2. AZATHIOPRINE. [Suspect]
     Active Substance: AZATHIOPRINE
     Indication: CROHN^S DISEASE
     Route: 064
     Dates: start: 20141117, end: 20150715

REACTIONS (2)
  - Foetal exposure during pregnancy [Recovered/Resolved]
  - Coombs direct test positive [Unknown]

NARRATIVE: CASE EVENT DATE: 20141117
